FAERS Safety Report 4915927-1 (Version None)
Quarter: 2006Q1

REPORT INFORMATION
  Report Type: 
  Country: None (occurrence: None)
  Receive Date: 20060214
  Receipt Date: 20060126
  Transmission Date: 20060701
  Serious: Yes (Hospitalization)
  Sender: FDA-Public Use
  Company Number: US200512001343

PATIENT
  Age: 10 Year
  Sex: Male
  Weight: 30.5 kg

DRUGS (6)
  1. STRATTERA [Suspect]
     Indication: ATTENTION DEFICIT/HYPERACTIVITY DISORDER
     Dosage: 25 MG, DAILY (1/D)
     Dates: start: 20050401, end: 20051027
  2. MERCAPTOPURINE [Concomitant]
  3. METHOTREXATE [Concomitant]
  4. VINCRISTINE SULFATE [Concomitant]
  5. DEXAMETHASONE [Concomitant]
  6. BACTRIM     /UNK/(SULFAMETHOXAZOLE, TRIMETHOPRIM) [Concomitant]

REACTIONS (12)
  - APPETITE DISORDER [None]
  - CHOLELITHIASIS [None]
  - COUGH [None]
  - DIARRHOEA [None]
  - DYSPEPSIA [None]
  - FATIGUE [None]
  - HEAD TITUBATION [None]
  - HEART RATE INCREASED [None]
  - HYPOPROTHROMBINAEMIA [None]
  - LIVER DISORDER [None]
  - NOCTURIA [None]
  - PROTHROMBIN TIME PROLONGED [None]
